FAERS Safety Report 7455959-5 (Version None)
Quarter: 2011Q2

REPORT INFORMATION
  Report Type: 
  Country: None (occurrence: None)
  Receive Date: 20110503
  Receipt Date: 20110422
  Transmission Date: 20111010
  Serious: Yes (Hospitalization, Other)
  Sender: FDA-Public Use
  Company Number: AR-AMGEN-ARGSP2011014089

PATIENT
  Age: 45 Year
  Sex: Female
  Weight: 108 kg

DRUGS (5)
  1. OMEPRAZOLE [Concomitant]
     Dosage: UNK
  2. ENBREL [Suspect]
     Indication: RHEUMATOID ARTHRITIS
     Dosage: 50 MG, WEEKLY
     Route: 058
     Dates: start: 20090101, end: 20110201
  3. ENBREL [Suspect]
     Dosage: UNK
     Dates: start: 20110301
  4. ENALAPRIL [Concomitant]
     Dosage: UNK
  5. METFORMIN HYDROCHLORIDE [Concomitant]
     Dosage: UNK

REACTIONS (6)
  - THYROID DISORDER [None]
  - BLOOD GLUCOSE INCREASED [None]
  - TOOTH INFECTION [None]
  - PHARYNGEAL INFLAMMATION [None]
  - PHARYNGITIS [None]
  - PROTEINURIA [None]
